FAERS Safety Report 17922454 (Version 4)
Quarter: 2020Q3

REPORT INFORMATION
  Report Type: Spontaneous
  Country: US (occurrence: US)
  Receive Date: 20200622
  Receipt Date: 20200908
  Transmission Date: 20201103
  Serious: No
  Sender: FDA-Public Use
  Company Number: US-GLAXOSMITHKLINE-US2020AMR105560

PATIENT
  Sex: Female

DRUGS (4)
  1. ZEJULA [Suspect]
     Active Substance: NIRAPARIB
     Dosage: 200 MG, QD
     Route: 065
  2. ONDANSETRON [Suspect]
     Active Substance: ONDANSETRON
     Indication: PRODUCT USED FOR UNKNOWN INDICATION
     Dosage: UNK
  3. ZEJULA [Suspect]
     Active Substance: NIRAPARIB
     Indication: OVARIAN CANCER
     Dosage: 200 MG, QD
     Route: 065
     Dates: start: 20200530
  4. ZEJULA [Suspect]
     Active Substance: NIRAPARIB
     Dosage: 200 MG, QD (AT 10:00 PM WITHOUT FOOD)
     Route: 065

REACTIONS (12)
  - Somnolence [Unknown]
  - Tearfulness [Unknown]
  - Illness [Unknown]
  - Sleep disorder [Unknown]
  - Underdose [Unknown]
  - Insomnia [Unknown]
  - Crying [Unknown]
  - Skin discolouration [Not Recovered/Not Resolved]
  - Productive cough [Unknown]
  - Nausea [Not Recovered/Not Resolved]
  - Emotional disorder [Unknown]
  - Vomiting [Not Recovered/Not Resolved]
